FAERS Safety Report 16051082 (Version 4)
Quarter: 2020Q3

REPORT INFORMATION
  Report Type: Spontaneous
  Country: US (occurrence: US)
  Receive Date: 20190308
  Receipt Date: 20200907
  Transmission Date: 20201102
  Serious: Yes (Hospitalization, Other)
  Sender: FDA-Public Use
  Company Number: US-ROCHE-2276256

PATIENT
  Age: 68 Year
  Sex: Male
  Weight: 93.07 kg

DRUGS (21)
  1. BACTRIM [Concomitant]
     Active Substance: SULFAMETHOXAZOLE\TRIMETHOPRIM
     Dosage: 1 TABLET ON MONDAY, WEDNESDAY, AND FRIDAY; ONGOING: YES
     Route: 048
     Dates: start: 201812
  2. ELIQUIS [Concomitant]
     Active Substance: APIXABAN
     Indication: THROMBOSIS
     Dosage: AT 8 AM AND 8 PM; ONGOING: YES
     Route: 048
  3. PRAVASTATIN. [Concomitant]
     Active Substance: PRAVASTATIN
     Indication: BLOOD CHOLESTEROL
     Route: 048
  4. VALCYTE [Suspect]
     Active Substance: VALGANCICLOVIR HYDROCHLORIDE
     Indication: LUNG TRANSPLANT
     Dosage: 2 OF 450 MG TABLETS
     Route: 048
     Dates: start: 20190315, end: 20191017
  5. TOPROL XL [Concomitant]
     Active Substance: METOPROLOL SUCCINATE
     Indication: BLOOD PRESSURE MEASUREMENT
     Route: 048
  6. PREDNISONE. [Concomitant]
     Active Substance: PREDNISONE
     Route: 048
     Dates: start: 201812
  7. PROTONIX [Concomitant]
     Active Substance: PANTOPRAZOLE SODIUM
     Route: 048
  8. MAGNESIUM GLUCONATE [Concomitant]
     Active Substance: MAGNESIUM GLUCONATE
     Route: 048
     Dates: start: 201812
  9. MELATONIN [Concomitant]
     Active Substance: MELATONIN
     Dosage: 2 OF 3 MG TABLETS
     Route: 048
     Dates: start: 201812
  10. ALBUTEROL. [Concomitant]
     Active Substance: ALBUTEROL
     Dosage: 2.5MG/3ML
     Route: 055
     Dates: start: 202005
  11. FINASTERIDE. [Concomitant]
     Active Substance: FINASTERIDE
     Route: 048
     Dates: start: 20190516
  12. VALCYTE [Suspect]
     Active Substance: VALGANCICLOVIR HYDROCHLORIDE
     Indication: CYTOMEGALOVIRUS INFECTION
     Dosage: 2 TABS QD
     Route: 048
     Dates: start: 20191018, end: 202001
  13. FERROUS SULFATE. [Concomitant]
     Active Substance: FERROUS SULFATE
     Route: 048
     Dates: start: 202005
  14. VALCYTE [Suspect]
     Active Substance: VALGANCICLOVIR HYDROCHLORIDE
     Route: 048
     Dates: start: 20200414, end: 20200511
  15. VALCYTE [Suspect]
     Active Substance: VALGANCICLOVIR HYDROCHLORIDE
     Route: 048
     Dates: start: 20200512, end: 20200716
  16. GENGRAF [Concomitant]
     Active Substance: CYCLOSPORINE
     Dosage: V
     Route: 048
     Dates: start: 201812
  17. PROTONIX [Concomitant]
     Active Substance: PANTOPRAZOLE SODIUM
     Route: 048
     Dates: end: 201910
  18. CITRACAL?D [Concomitant]
     Active Substance: CALCIUM CITRATE\CHOLECALCIFEROL
     Route: 048
     Dates: start: 201812
  19. VALCYTE [Suspect]
     Active Substance: VALGANCICLOVIR HYDROCHLORIDE
     Route: 048
     Dates: start: 20200716
  20. CELLCEPT [Suspect]
     Active Substance: MYCOPHENOLATE MOFETIL\MYCOPHENOLATE MOFETIL HYDROCHLORIDE
     Indication: PRODUCT USED FOR UNKNOWN INDICATION
     Route: 048
     Dates: start: 201812
  21. SODIUM CHLORIDE. [Concomitant]
     Active Substance: SODIUM CHLORIDE

REACTIONS (10)
  - Off label use [Unknown]
  - Unevaluable event [Not Recovered/Not Resolved]
  - Intentional product use issue [Unknown]
  - Dysuria [Unknown]
  - Cytomegalovirus infection [Unknown]
  - Ill-defined disorder [Recovered/Resolved]
  - Thrombosis [Recovered/Resolved]
  - Constipation [Recovered/Resolved]
  - Blood iron decreased [Unknown]
  - Sleep deficit [Unknown]

NARRATIVE: CASE EVENT DATE: 20190516
